FAERS Safety Report 19459466 (Version 1)
Quarter: 2021Q2

REPORT INFORMATION
  Report Type: Spontaneous
  Country: US (occurrence: US)
  Receive Date: 20210625
  Receipt Date: 20210625
  Transmission Date: 20210717
  Serious: Yes (Other)
  Sender: FDA-Public Use
  Company Number: None

PATIENT
  Sex: Male

DRUGS (4)
  1. LATANOPROST. [Suspect]
     Active Substance: LATANOPROST
  2. TRAVATAN [Suspect]
     Active Substance: TRAVOPROST
  3. BIMATOPROST. [Suspect]
     Active Substance: BIMATOPROST
     Indication: OPEN ANGLE GLAUCOMA
     Route: 047
     Dates: start: 20130228
  4. DORZOLAMIDE [Suspect]
     Active Substance: DORZOLAMIDE

REACTIONS (3)
  - Intraocular pressure increased [None]
  - Product substitution issue [None]
  - Drug ineffective [None]
